FAERS Safety Report 7531752-X (Version None)
Quarter: 2011Q2

REPORT INFORMATION
  Report Type: 
  Country: None (occurrence: None)
  Receive Date: 20110608
  Receipt Date: 20110530
  Transmission Date: 20111010
  Serious: Yes (Other)
  Sender: FDA-Public Use
  Company Number: IE-ROCHE-709959

PATIENT
  Sex: Male

DRUGS (1)
  1. LARIAM [Suspect]
     Indication: MALARIA PROPHYLAXIS
     Dosage: DOSE AND FREQUENCY NOT PROVIDED.
     Route: 065
     Dates: start: 20040101, end: 20050101

REACTIONS (15)
  - MUSCLE SPASMS [None]
  - INSOMNIA [None]
  - RENAL PAIN [None]
  - HALLUCINATION [None]
  - ABDOMINAL PAIN UPPER [None]
  - DIARRHOEA [None]
  - FATIGUE [None]
  - MYALGIA [None]
  - OEDEMA PERIPHERAL [None]
  - DEPRESSION [None]
  - CHEST PAIN [None]
  - MENTAL DISORDER [None]
  - HEADACHE [None]
  - ANXIETY [None]
  - JOINT SWELLING [None]
